FAERS Safety Report 21286228 (Version 3)
Quarter: 2022Q3

REPORT INFORMATION
  Report Type: Spontaneous
  Country: CN (occurrence: CN)
  Receive Date: 20220902
  Receipt Date: 20220913
  Transmission Date: 20221027
  Serious: Yes (Hospitalization, Other)
  Sender: FDA-Public Use
  Company Number: CN-PARATEK PHARMACEUTICALS, INC.-2022PTK00278

PATIENT
  Age: 58 Year
  Sex: Male
  Weight: 45 kg

DRUGS (4)
  1. NUZYRA [Suspect]
     Active Substance: OMADACYCLINE
     Indication: Sepsis
     Dosage: 0.1 G, 1X/DAY
     Route: 041
     Dates: start: 20220810
  2. NUZYRA [Suspect]
     Active Substance: OMADACYCLINE
     Indication: Pneumonia
     Dosage: 0.1 G, 1X/DAY
     Route: 041
     Dates: start: 20220810
  3. NUZYRA [Suspect]
     Active Substance: OMADACYCLINE
     Indication: Pneumonia aspiration
  4. NUZYRA [Suspect]
     Active Substance: OMADACYCLINE
     Indication: Klebsiella test positive

REACTIONS (6)
  - Rash [Recovering/Resolving]
  - Hepatic enzyme increased [Recovering/Resolving]
  - Blood bilirubin increased [Unknown]
  - Bilirubin conjugated increased [Unknown]
  - Protein total decreased [Unknown]
  - Blood albumin decreased [Unknown]

NARRATIVE: CASE EVENT DATE: 20220815
